FAERS Safety Report 6759062-9 (Version None)
Quarter: 2010Q2

REPORT INFORMATION
  Report Type: 
  Country: None (occurrence: None)
  Receive Date: 20100607
  Receipt Date: 20100602
  Transmission Date: 20101027
  Serious: Yes (Hospitalization)
  Sender: FDA-Public Use
  Company Number: IT-ROXANE LABORATORIES, INC.-2010-RO-00683RO

PATIENT
  Sex: Female

DRUGS (4)
  1. CLARITHROMYCIN [Suspect]
     Indication: KLEBSIELLA INFECTION
  2. CLARITHROMYCIN [Suspect]
     Indication: UREAPLASMA INFECTION
  3. GENTAMICIN [Suspect]
     Indication: KLEBSIELLA INFECTION
  4. GENTAMICIN [Suspect]
     Indication: UREAPLASMA INFECTION

REACTIONS (2)
  - CHORIOAMNIONITIS [None]
  - PREMATURE RUPTURE OF MEMBRANES [None]
